FAERS Safety Report 20973317 (Version 5)
Quarter: 2022Q4

REPORT INFORMATION
  Report Type: Spontaneous
  Country: CA (occurrence: CA)
  Receive Date: 20220617
  Receipt Date: 20221206
  Transmission Date: 20230113
  Serious: Yes (Other)
  Sender: FDA-Public Use
  Company Number: CA-CELLTRION INC.-2022CA008631

PATIENT

DRUGS (15)
  1. INFLECTRA [Suspect]
     Active Substance: INFLIXIMAB-DYYB
     Indication: Crohn^s disease
     Dosage: 5 MG/KG, DOSE TO BE ROUNDED UP IF LARGER OR EQUAL TO 50MG, WEEKS 0,2,6, THEN EVERY 8 WEEKS
     Route: 042
     Dates: start: 20220427
  2. INFLECTRA [Suspect]
     Active Substance: INFLIXIMAB-DYYB
     Dosage: 5 MG/KG, DOSE TO BE ROUNDED UP IF LARGER OR EQUAL TO 50MG, WEEKS 0,2,6, THEN EVERY 8 WEEKS
     Route: 042
     Dates: start: 20220427
  3. INFLECTRA [Suspect]
     Active Substance: INFLIXIMAB-DYYB
     Dosage: 5 MG/KG, DOSE TO BE ROUNDED UP IF LARGER OR EQUAL TO 50MG, WEEKS 0,2,6, THEN EVERY 8 WEEKS
     Route: 042
     Dates: start: 20220427
  4. INFLECTRA [Suspect]
     Active Substance: INFLIXIMAB-DYYB
     Dosage: 5 MG/KG, DOSE TO BE ROUNDED UP IF LARGER OR EQUAL TO 50MG, WEEKS 0,2,6, THEN EVERY 8 WEEKS
     Route: 042
     Dates: start: 20220510
  5. INFLECTRA [Suspect]
     Active Substance: INFLIXIMAB-DYYB
     Dosage: 5 MG/KG, DOSE TO BE ROUNDED UP IF LARGER OR EQUAL TO 50MG, WEEKS 0,2,6, THEN EVERY 8 WEEKS
     Route: 042
     Dates: start: 20220607
  6. INFLECTRA [Suspect]
     Active Substance: INFLIXIMAB-DYYB
     Dosage: 5 MG/KG, DOSE TO BE ROUNDED UP IF LARGER OR EQUAL TO 50MG, WEEKS 0,2,6, THEN EVERY 8 WEEKS
     Route: 042
     Dates: start: 20220607
  7. INFLECTRA [Suspect]
     Active Substance: INFLIXIMAB-DYYB
     Dosage: 5 MG/KG, DOSE TO BE ROUNDED UP IF LARGER OR EQUAL TO 50MG, WEEKS 0,2,6, THEN EVERY 8 WEEKS
     Route: 042
     Dates: start: 20220623
  8. INFLECTRA [Suspect]
     Active Substance: INFLIXIMAB-DYYB
     Dosage: 600 MG, DOSE TO BE ROUNDED UP IF LARGER OR EQUAL TO 50MG, WEEKS 0,2,6, THEN EVERY 8 WEEKS
     Route: 042
     Dates: start: 20220804
  9. INFLECTRA [Suspect]
     Active Substance: INFLIXIMAB-DYYB
     Dosage: 600 MG(5 MG/KG), ROUNDED UP TO SUPERIOR VIAL IF MORE OR EQUAL TO 50MG,WEEKS 0,2,6, THEN EVERY 8WEEKS
     Route: 042
     Dates: start: 20220929
  10. INFLECTRA [Suspect]
     Active Substance: INFLIXIMAB-DYYB
     Dosage: 600 MG (SUPPOSED TO RECEIVE 5 MG/KG, WEEKS0,2,6, THEN Q8WEEKS)
     Route: 042
     Dates: start: 20221125
  11. CORTISONE [Concomitant]
     Active Substance: CORTISONE
     Dosage: UNK
  12. PANTOPRAZOLE SODIUM [Concomitant]
     Active Substance: PANTOPRAZOLE SODIUM
     Dosage: 40 MG, UNKNOWN FREQUENCY
     Route: 065
     Dates: start: 20220425, end: 20220430
  13. PREDNISONE [Concomitant]
     Active Substance: PREDNISONE
     Dosage: 40 MG, DAILY
     Route: 048
     Dates: start: 20220324
  14. PREDNISONE [Concomitant]
     Active Substance: PREDNISONE
     Dosage: 40 MG, 1X/DAY
     Route: 048
     Dates: start: 20220324
  15. TYLENOL [Concomitant]
     Active Substance: ACETAMINOPHEN
     Dosage: 1 DF DOSAGE NOT AVAILABLE
     Route: 065

REACTIONS (5)
  - Weight increased [Unknown]
  - Incorrect dose administered [Unknown]
  - Product availability issue [Unknown]
  - Arthralgia [Unknown]
  - Aphthous ulcer [Unknown]

NARRATIVE: CASE EVENT DATE: 20220101
